FAERS Safety Report 4445757-9 (Version None)
Quarter: 2004Q3

REPORT INFORMATION
  Report Type: 
  Country: None (occurrence: None)
  Receive Date: 20040903
  Receipt Date: 20040824
  Transmission Date: 20050211
  Serious: Yes (Hospitalization)
  Sender: FDA-Public Use
  Company Number: 2004-BP-07340AU

PATIENT
  Sex: Female

DRUGS (5)
  1. MOBIC [Suspect]
     Dosage: 7.5 MG (7.5 MG, 7.5MG ORALLY DAILY)
     Route: 048
     Dates: end: 20030618
  2. ALLOPURINOL [Concomitant]
  3. ATENOLOL [Concomitant]
  4. FUROSEMIDE [Concomitant]
  5. ALENDRONATE SODIUM [Concomitant]

REACTIONS (3)
  - DYSPNOEA [None]
  - JOINT SWELLING [None]
  - VENTRICULAR FAILURE [None]
